FAERS Safety Report 9645656 (Version 1)
Quarter: 2013Q4

REPORT INFORMATION
  Report Type: Spontaneous
  Country: IT (occurrence: IT)
  Receive Date: 20131025
  Receipt Date: 20131025
  Transmission Date: 20140711
  Serious: Yes (Other)
  Sender: FDA-Public Use
  Company Number: PHHY2013IT118584

PATIENT
  Age: 21 Year
  Sex: Female

DRUGS (8)
  1. CICLOSPORIN [Suspect]
     Indication: PROPHYLAXIS AGAINST GRAFT VERSUS HOST DISEASE
  2. ETOPOSIDE [Suspect]
     Indication: ACUTE LYMPHOCYTIC LEUKAEMIA
  3. MYCOPHENOLATE MOFETIL [Suspect]
     Indication: PROPHYLAXIS AGAINST GRAFT VERSUS HOST DISEASE
  4. CYCLOPHOSPHAMIDE [Suspect]
     Indication: ACUTE LYMPHOCYTIC LEUKAEMIA
  5. NELARABINE [Suspect]
     Indication: ACUTE LYMPHOCYTIC LEUKAEMIA
  6. ACYCLOVIR [Concomitant]
     Indication: ANTIVIRAL PROPHYLAXIS
  7. THIOTEPA [Concomitant]
  8. ATG//ANTITHYMOCYTE IMMUNOGLOBULIN (RABBIT) [Concomitant]

REACTIONS (10)
  - Bone marrow failure [Unknown]
  - Viral haemorrhagic cystitis [Recovered/Resolved]
  - Herpes virus infection [Recovered/Resolved]
  - Stomatitis [Recovered/Resolved]
  - Oesophagitis [Unknown]
  - Transaminases increased [Unknown]
  - Gamma-glutamyltransferase increased [Unknown]
  - Acute graft versus host disease in skin [Unknown]
  - Skin lesion [Recovered/Resolved]
  - Human polyomavirus infection [Recovered/Resolved]
